FAERS Safety Report 7738683-0 (Version None)
Quarter: 2011Q3

REPORT INFORMATION
  Report Type: 
  Country: None (occurrence: None)
  Receive Date: 20110908
  Receipt Date: 20110906
  Transmission Date: 20111222
  Serious: No
  Sender: FDA-Public Use
  Company Number: US-PFIZER INC-2011209686

PATIENT
  Sex: Female
  Weight: 63.4 kg

DRUGS (13)
  1. TIZANIDINE [Concomitant]
     Indication: MUSCLE RELAXANT THERAPY
     Dosage: 4 MG, UNK
  2. SYNTHROID [Concomitant]
     Indication: THYROID DISORDER
     Dosage: 100 UG, DAILY
     Route: 048
  3. ZETIA [Concomitant]
     Indication: BLOOD CHOLESTEROL ABNORMAL
     Dosage: 10MG BY SPLITTING INTO HALF, UNK
     Route: 048
  4. CRESTOR [Concomitant]
     Indication: BLOOD CHOLESTEROL ABNORMAL
     Dosage: 10 MG, UNK
     Route: 048
  5. CHANTIX [Suspect]
     Indication: SMOKING CESSATION THERAPY
     Dosage: 0.5 MG, DAILY
     Route: 048
     Dates: start: 20110811, end: 20110822
  6. XANAX [Suspect]
     Indication: NERVOUSNESS
     Dosage: UNK, AS NEEDED
  7. NEXIUM [Concomitant]
     Indication: HYPERCHLORHYDRIA
     Dosage: 40 MG, DAILY
  8. ZANTAC [Concomitant]
     Dosage: 150 MG, DAILY
     Route: 048
  9. XANAX [Suspect]
     Indication: ANXIETY
  10. FISH OIL [Concomitant]
     Dosage: 1000 MG, 2X/DAY
  11. LORTAB [Concomitant]
     Indication: FIBROMYALGIA
     Dosage: 10/500 MG, EVERY FOUR TO SIX HOURS AS NEEDED
     Route: 048
  12. CALCIUM [Concomitant]
     Dosage: 500 MG, 2X/DAY
  13. ZOLOFT [Concomitant]
     Dosage: 100 MG, DAILY
     Route: 048

REACTIONS (2)
  - ABNORMAL DREAMS [None]
  - NOCTURIA [None]
